FAERS Safety Report 20041015 (Version 2)
Quarter: 2021Q4

REPORT INFORMATION
  Report Type: Spontaneous
  Country: US (occurrence: None)
  Receive Date: 20211107
  Receipt Date: 20211215
  Transmission Date: 20220303
  Serious: No
  Sender: FDA-Public Use
  Company Number: 2021A780297

PATIENT
  Age: 857 Month
  Sex: Female
  Weight: 63.5 kg

DRUGS (1)
  1. SYMBICORT [Suspect]
     Active Substance: BUDESONIDE\FORMOTEROL FUMARATE DIHYDRATE
     Indication: Asthma
     Dosage: 80/4.5 MCG, 2 PUFFS BID
     Route: 055

REACTIONS (5)
  - Body height decreased [Unknown]
  - Incorrect dose administered by device [Not Recovered/Not Resolved]
  - Product dose omission in error [Recovered/Resolved]
  - Device malfunction [Unknown]
  - Device use issue [Recovered/Resolved]

NARRATIVE: CASE EVENT DATE: 20210901
